FAERS Safety Report 20064514 (Version 1)
Quarter: 2021Q4

REPORT INFORMATION
  Report Type: Spontaneous
  Country: US (occurrence: US)
  Receive Date: 20211112
  Receipt Date: 20211112
  Transmission Date: 20220303
  Serious: No
  Sender: FDA-Public Use
  Company Number: US-THERAPEUTICSMD-2021TMD02277

PATIENT
  Sex: Female
  Weight: 83.447 kg

DRUGS (5)
  1. BIJUVA [Suspect]
     Active Substance: ESTRADIOL\PROGESTERONE
     Indication: Hot flush
     Dosage: 1 CAPSULE, 1X/DAY
     Route: 048
     Dates: start: 202103, end: 202104
  2. BIJUVA [Suspect]
     Active Substance: ESTRADIOL\PROGESTERONE
     Dosage: 1 CAPSULE, 1X/DAY
     Route: 048
     Dates: start: 2021, end: 202108
  3. LORATADINE [Concomitant]
     Active Substance: LORATADINE
     Dosage: UNK, 1X/DAY
  4. VENLAFAXINE [Concomitant]
     Active Substance: VENLAFAXINE HYDROCHLORIDE
     Dosage: 75 MG, 1X/DAY
  5. VITAMINS [Concomitant]
     Active Substance: VITAMINS

REACTIONS (5)
  - Arthralgia [Unknown]
  - Sinus disorder [Unknown]
  - Muscle spasms [Unknown]
  - Vaginal haemorrhage [Not Recovered/Not Resolved]
  - Headache [Unknown]

NARRATIVE: CASE EVENT DATE: 20210101
